FAERS Safety Report 16761038 (Version 1)
Quarter: 2019Q3

REPORT INFORMATION
  Report Type: Report from Study
  Country: CA (occurrence: CA)
  Receive Date: 20190830
  Receipt Date: 20190830
  Transmission Date: 20191005
  Serious: Yes (Life-Threatening, Hospitalization, Other)
  Sender: FDA-Public Use
  Company Number: CA-AMGEN-CANSL2019135551

PATIENT
  Age: 79 Year
  Sex: Female

DRUGS (1)
  1. XGEVA [Suspect]
     Active Substance: DENOSUMAB
     Indication: BREAST CANCER
     Dosage: 120 MILLIGRAM/1.7ML, QMO
     Route: 065
     Dates: start: 20181005

REACTIONS (2)
  - Cerebrovascular accident [Unknown]
  - Unevaluable event [Unknown]

NARRATIVE: CASE EVENT DATE: 20190820
